FAERS Safety Report 16037911 (Version 2)
Quarter: 2019Q3

REPORT INFORMATION
  Report Type: Report from Study
  Country: US (occurrence: US)
  Receive Date: 20190305
  Receipt Date: 20190809
  Transmission Date: 20191004
  Serious: No
  Sender: FDA-Public Use
  Company Number: PHEH2019US009118

PATIENT
  Sex: Male

DRUGS (1)
  1. COSENTYX [Suspect]
     Active Substance: SECUKINUMAB
     Indication: PSORIASIS
     Route: 042

REACTIONS (4)
  - Incorrect route of product administration [Unknown]
  - Injection site irritation [Unknown]
  - Injection site pruritus [Unknown]
  - Injection site rash [Not Recovered/Not Resolved]
